FAERS Safety Report 7793858-X (Version None)
Quarter: 2011Q4

REPORT INFORMATION
  Report Type: 
  Country: None (occurrence: None)
  Receive Date: 20111004
  Receipt Date: 20110929
  Transmission Date: 20120403
  Serious: Yes (Other)
  Sender: FDA-Public Use
  Company Number: US-BIOGENIDEC-2011BI035201

PATIENT
  Age: 38 Year
  Sex: Female

DRUGS (5)
  1. TYSABRI [Suspect]
     Indication: MULTIPLE SCLEROSIS
     Route: 042
     Dates: start: 20070402
  2. VERAPAMIL [Concomitant]
     Indication: HEADACHE
  3. FLUOXETINE [Concomitant]
     Indication: DEPRESSION
  4. GABAPENTIN [Concomitant]
     Indication: NEURALGIA
  5. BACLOFEN [Concomitant]
     Indication: MUSCLE SPASMS

REACTIONS (2)
  - URINARY TRACT INFECTION [None]
  - RENAL FAILURE [None]
